FAERS Safety Report 19560377 (Version 1)
Quarter: 2021Q3

REPORT INFORMATION
  Report Type: Spontaneous
  Country: US (occurrence: US)
  Receive Date: 20210716
  Receipt Date: 20210716
  Transmission Date: 20211014
  Serious: Yes (Hospitalization)
  Sender: FDA-Public Use
  Company Number: None

PATIENT
  Age: 35 Year
  Sex: Female
  Weight: 122.8 kg

DRUGS (3)
  1. TAXOL [Suspect]
     Active Substance: PACLITAXEL
     Dates: end: 20210625
  2. PERTUZUMAB. [Suspect]
     Active Substance: PERTUZUMAB
     Dates: end: 20210625
  3. HERCEPTIN [Suspect]
     Active Substance: TRASTUZUMAB
     Dates: end: 20210625

REACTIONS (9)
  - Heavy menstrual bleeding [None]
  - Pulmonary embolism [None]
  - Deep vein thrombosis [None]
  - Fall [None]
  - Epistaxis [None]
  - Haemorrhoidal haemorrhage [None]
  - Diarrhoea [None]
  - Gastrointestinal haemorrhage [None]
  - Cautery to nose [None]

NARRATIVE: CASE EVENT DATE: 20210713
